FAERS Safety Report 5054545-4 (Version None)
Quarter: 2006Q3

REPORT INFORMATION
  Report Type: 
  Country: None (occurrence: None)
  Receive Date: 20060714
  Receipt Date: 20060703
  Transmission Date: 20061208
  Serious: Yes (Other)
  Sender: FDA-Public Use
  Company Number: GXKR2006AT03820

PATIENT
  Age: 47 Year
  Sex: Female
  Weight: 48 kg

DRUGS (1)
  1. THIAMAZOLE SANDOZ (NGX) (THIAMAZOLE)TABLET, 20MG [Suspect]
     Indication: HYPERTHYROIDISM
     Dosage: 20 MG, BID, ORAL
     Route: 048
     Dates: start: 20060529, end: 20060610

REACTIONS (5)
  - CARDIOVASCULAR DISORDER [None]
  - ENTERITIS [None]
  - HYPOTONIA [None]
  - PYREXIA [None]
  - VOMITING [None]
